FAERS Safety Report 12407775 (Version 3)
Quarter: 2016Q3

REPORT INFORMATION
  Report Type: Spontaneous
  Country: JP (occurrence: JP)
  Receive Date: 20160526
  Receipt Date: 20160804
  Transmission Date: 20161109
  Serious: Yes (Other)
  Sender: FDA-Public Use
  Company Number: JP-GLAXOSMITHKLINE-JP2016JPN065391

PATIENT
  Age: 68 Year
  Sex: Male

DRUGS (4)
  1. INSULIN [Concomitant]
     Active Substance: INSULIN NOS
     Dosage: UNK
  2. URIEF [Suspect]
     Active Substance: SILODOSIN
     Dosage: UNK
     Route: 048
     Dates: start: 201512
  3. AVOLVE [Suspect]
     Active Substance: DUTASTERIDE
     Indication: HAEMORRHAGE PROPHYLAXIS
     Dosage: 0.5 MG, QD
     Route: 048
     Dates: start: 20160404, end: 20160509
  4. ZALUTIA [Concomitant]
     Active Substance: TADALAFIL
     Dosage: UNK
     Dates: start: 201512

REACTIONS (4)
  - Erythema multiforme [Recovered/Resolved]
  - Rash [Recovered/Resolved]
  - Urinary retention [Unknown]
  - Off label use [Unknown]

NARRATIVE: CASE EVENT DATE: 20160509
